FAERS Safety Report 7150502-2 (Version None)
Quarter: 2010Q4

REPORT INFORMATION
  Report Type: 
  Country: None (occurrence: None)
  Receive Date: 20101210
  Receipt Date: 20101129
  Transmission Date: 20110411
  Serious: Yes (Other)
  Sender: FDA-Public Use
  Company Number: DE-PFIZER INC-2010159955

PATIENT
  Sex: Male

DRUGS (1)
  1. XALATAN [Suspect]
     Indication: GLAUCOMA
     Dosage: UNK
     Route: 047

REACTIONS (6)
  - DYSGEUSIA [None]
  - DYSPHONIA [None]
  - EYE IRRITATION [None]
  - LARYNGEAL OEDEMA [None]
  - VOCAL CORD DISORDER [None]
  - VOCAL CORD INFLAMMATION [None]
